FAERS Safety Report 7929730-1 (Version None)
Quarter: 2011Q4

REPORT INFORMATION
  Report Type: 
  Country: None (occurrence: None)
  Receive Date: 20111121
  Receipt Date: 20111114
  Transmission Date: 20120403
  Serious: Yes (Hospitalization, Other)
  Sender: FDA-Public Use
  Company Number: PHHY2011US60967

PATIENT
  Sex: Female

DRUGS (2)
  1. TOBI [Suspect]
     Indication: PSEUDOMONAS INFECTION
     Dosage: 300 MG, BID
  2. ALBUTEROL [Concomitant]

REACTIONS (6)
  - HAEMORRHAGE [None]
  - ABDOMINAL DISCOMFORT [None]
  - INTESTINAL OBSTRUCTION [None]
  - WOUND COMPLICATION [None]
  - HERNIA [None]
  - INFECTION [None]
